FAERS Safety Report 6149217-9 (Version None)
Quarter: 2009Q2

REPORT INFORMATION
  Report Type: 
  Country: None (occurrence: None)
  Receive Date: 20090406
  Receipt Date: 20090406
  Transmission Date: 20091009
  Serious: Yes (Hospitalization)
  Sender: FDA-Public Use
  Company Number: None

PATIENT
  Age: 49 Year
  Sex: Female
  Weight: 78.9259 kg

DRUGS (1)
  1. MUPIROCIN [Suspect]
     Indication: WOUND INFECTION
     Dosage: APPLY TO AFFECTED AREA TWICE DAILY CUTANEOUS
     Route: 003
     Dates: start: 20090331, end: 20090403

REACTIONS (1)
  - DERMATITIS CONTACT [None]
